FAERS Safety Report 21458240 (Version 1)
Quarter: 2022Q4

REPORT INFORMATION
  Report Type: Spontaneous
  Country: RU (occurrence: RU)
  Receive Date: 20221014
  Receipt Date: 20221014
  Transmission Date: 20230113
  Serious: Yes (Hospitalization)
  Sender: FDA-Public Use
  Company Number: None

PATIENT
  Age: 2 Year
  Sex: Male

DRUGS (4)
  1. OMEPRAZOLE [Suspect]
     Active Substance: OMEPRAZOLE
     Indication: Product used for unknown indication
     Route: 048
     Dates: start: 20220923, end: 20220923
  2. NIMESULIDE [Suspect]
     Active Substance: NIMESULIDE
     Indication: Product used for unknown indication
     Route: 048
     Dates: start: 20220923, end: 20220923
  3. NICOTINIC ACID [Suspect]
     Active Substance: NIACIN
     Indication: Product used for unknown indication
     Route: 048
     Dates: start: 20220923, end: 20220923
  4. TILORONE [Suspect]
     Active Substance: TILORONE
     Indication: Product used for unknown indication
     Route: 048
     Dates: start: 20220923, end: 20220923

REACTIONS (3)
  - Fatigue [Recovered/Resolved]
  - Erythema [Recovered/Resolved]
  - Accidental exposure to product by child [Unknown]

NARRATIVE: CASE EVENT DATE: 20220923
